FAERS Safety Report 15412900 (Version 1)
Quarter: 2018Q3

REPORT INFORMATION
  Report Type: Spontaneous
  Country: CA (occurrence: CA)
  Receive Date: 20180921
  Receipt Date: 20180921
  Transmission Date: 20181010
  Serious: Yes (Other)
  Sender: FDA-Public Use
  Company Number: CA-PFIZER INC-2018378136

PATIENT
  Age: 33 Year
  Sex: Male
  Weight: 70 kg

DRUGS (1)
  1. METHOTREXATE SODIUM. [Suspect]
     Active Substance: METHOTREXATE SODIUM
     Dosage: 25 MG, WEEKLY
     Dates: start: 201710, end: 201808

REACTIONS (4)
  - Enteritis [Unknown]
  - Ileus [Unknown]
  - Drug ineffective [Unknown]
  - Fatigue [Unknown]
